FAERS Safety Report 6606817-7 (Version None)
Quarter: 2010Q1

REPORT INFORMATION
  Report Type: 
  Country: None (occurrence: None)
  Receive Date: 20100226
  Receipt Date: 20090210
  Transmission Date: 20100710
  Serious: No
  Sender: FDA-Public Use
  Company Number: US-ALLERGAN-0901783US

PATIENT
  Age: 40 Year
  Sex: Female

DRUGS (2)
  1. BOTOX COSMETIC [Suspect]
     Indication: SKIN WRINKLING
     Dosage: 20 UNITS, SINGLE
     Route: 030
     Dates: start: 20081001, end: 20081001
  2. BOTOX COSMETIC [Suspect]
     Dosage: 20 UNITS, SINGLE
     Dates: start: 20081101, end: 20081101

REACTIONS (4)
  - ANXIETY [None]
  - NAUSEA [None]
  - SENSATION OF PRESSURE [None]
  - THROAT TIGHTNESS [None]
